FAERS Safety Report 16767180 (Version 6)
Quarter: 2020Q2

REPORT INFORMATION
  Report Type: Spontaneous
  Country: US (occurrence: US)
  Receive Date: 20190903
  Receipt Date: 20200413
  Transmission Date: 20200713
  Serious: No
  Sender: FDA-Public Use
  Company Number: US-PFIZER INC-2019377024

PATIENT
  Age: 50 Year
  Sex: Female

DRUGS (3)
  1. LYRICA [Suspect]
     Active Substance: PREGABALIN
     Indication: NEUROPATHY PERIPHERAL
     Dosage: 100 MG, 3X/DAY
     Dates: start: 201908
  2. LYRICA [Suspect]
     Active Substance: PREGABALIN
     Indication: HYPERTENSION
     Dosage: 200 MG, 3X/DAY (1 CAP TID 90 DAYS)
     Route: 048
  3. GABAPENTIN. [Concomitant]
     Active Substance: GABAPENTIN
     Dosage: UNK

REACTIONS (3)
  - Irritability [Unknown]
  - Therapeutic product effect incomplete [Unknown]
  - Nerve compression [Unknown]
